FAERS Safety Report 8259197-8 (Version None)
Quarter: 2012Q2

REPORT INFORMATION
  Report Type: 
  Country: None (occurrence: None)
  Receive Date: 20120404
  Receipt Date: 20120330
  Transmission Date: 20120825
  Serious: Yes (Hospitalization, Other)
  Sender: FDA-Public Use
  Company Number: SE-PFIZER INC-2012077895

PATIENT
  Age: 52 Year
  Sex: Female
  Weight: 71.9 kg

DRUGS (6)
  1. SOMATROPIN RDNA [Suspect]
     Dosage: 0.5 MG, 1X/DAY
     Dates: end: 20070629
  2. LEVOTHYROXINE [Concomitant]
     Indication: HYPOTHYROIDISM
     Dosage: 50 UG, 1X/DAY
     Dates: start: 20081201
  3. INNOHEP [Concomitant]
     Indication: VENOUS THROMBOSIS
     Dosage: UNK
     Route: 058
     Dates: start: 20090330
  4. SOMATROPIN RDNA [Suspect]
     Indication: GROWTH HORMONE DEFICIENCY
     Dosage: 0.1 MG, 1X/DAY
     Dates: start: 19960417
  5. HYDROCORTISONE [Concomitant]
     Indication: BLOOD CORTISOL DECREASED
     Dosage: 10 MG, 2X/DAY
     Dates: start: 20071205
  6. HYDROCORTISONE [Concomitant]
     Dosage: 10 MG, 3X/DAY
     Dates: start: 20090226

REACTIONS (2)
  - RECTAL CANCER METASTATIC [None]
  - RECTAL CANCER [None]
